FAERS Safety Report 7926977-5 (Version None)
Quarter: 2011Q4

REPORT INFORMATION
  Report Type: 
  Country: None (occurrence: None)
  Receive Date: 20111116
  Receipt Date: 20111102
  Transmission Date: 20120403
  Serious: Yes (Hospitalization)
  Sender: FDA-Public Use
  Company Number: 2011-4425

PATIENT
  Age: 9 Year
  Sex: Male
  Weight: 15.5 kg

DRUGS (1)
  1. INCRELEX [Suspect]
     Indication: PRODUCT USED FOR UNKNOWN INDICATION
     Dosage: 37.4 UNITS (2.2 UNITS, CONTINUOUS INFUSION 7:00 AM TO MIDNIGHT)

REACTIONS (2)
  - UPPER LIMB FRACTURE [None]
  - WRONG TECHNIQUE IN DRUG USAGE PROCESS [None]
